FAERS Safety Report 15934571 (Version 1)
Quarter: 2019Q1

REPORT INFORMATION
  Report Type: Spontaneous
  Country: US (occurrence: US)
  Receive Date: 20190207
  Receipt Date: 20190207
  Transmission Date: 20190417
  Serious: No
  Sender: FDA-Public Use
  Company Number: US-SA-2019SA017702

PATIENT
  Age: 91 Year
  Sex: Female
  Weight: 68.03 kg

DRUGS (1)
  1. COLESEVELAM HYDROCHLORIDE. [Suspect]
     Active Substance: COLESEVELAM HYDROCHLORIDE
     Indication: DIARRHOEA
     Dosage: 625 MG, BID
     Route: 048
     Dates: start: 2016

REACTIONS (2)
  - Off label use [Not Recovered/Not Resolved]
  - No adverse event [Not Recovered/Not Resolved]
